FAERS Safety Report 20998772 (Version 1)
Quarter: 2022Q2

REPORT INFORMATION
  Report Type: Spontaneous
  Country: SE (occurrence: SE)
  Receive Date: 20220623
  Receipt Date: 20220623
  Transmission Date: 20220721
  Serious: Yes (Other)
  Sender: FDA-Public Use
  Company Number: None

PATIENT
  Age: 11 Year
  Sex: Male

DRUGS (7)
  1. REMICADE [Suspect]
     Active Substance: INFLIXIMAB
     Indication: Juvenile idiopathic arthritis
     Route: 041
     Dates: start: 20220510, end: 20220510
  2. METHOTREXATE [Concomitant]
     Active Substance: METHOTREXATE
  3. NAPROXEN [Concomitant]
     Active Substance: NAPROXEN
  4. DEXAMETHASONE SODIUM PHOSPHATE [Concomitant]
     Active Substance: DEXAMETHASONE SODIUM PHOSPHATE
  5. OVIXAN [Concomitant]
  6. Folsyra [Concomitant]
  7. OMEPRAZOLE [Concomitant]
     Active Substance: OMEPRAZOLE

REACTIONS (1)
  - Painful respiration [Recovered/Resolved]

NARRATIVE: CASE EVENT DATE: 20220510
